APPROVED DRUG PRODUCT: NITROFURANTOIN
Active Ingredient: NITROFURANTOIN
Strength: 25MG/5ML
Dosage Form/Route: SUSPENSION;ORAL
Application: A205180 | Product #001 | TE Code: AB
Applicant: ACTAVIS MID ATLANTIC LLC
Approved: May 3, 2016 | RLD: No | RS: No | Type: RX